FAERS Safety Report 18695442 (Version 1)
Quarter: 2021Q1

REPORT INFORMATION
  Report Type: Spontaneous
  Country: FR (occurrence: FR)
  Receive Date: 20210104
  Receipt Date: 20210104
  Transmission Date: 20210419
  Serious: Yes (Hospitalization)
  Sender: FDA-Public Use
  Company Number: NVSC2020FR344054

PATIENT
  Age: 87 Year
  Sex: Female
  Weight: 37 kg

DRUGS (17)
  1. PANTOPRAZOLE [Suspect]
     Active Substance: PANTOPRAZOLE
     Indication: PRODUCT USED FOR UNKNOWN INDICATION
     Dosage: 20 MG,QD
     Route: 048
     Dates: start: 2015, end: 20200917
  2. PARACETAMOL [Concomitant]
     Active Substance: ACETAMINOPHEN
     Indication: PRODUCT USED FOR UNKNOWN INDICATION
     Dosage: 3 UNK,QD
     Route: 048
     Dates: start: 20190408
  3. LATANOPROST. [Concomitant]
     Active Substance: LATANOPROST
     Indication: PRODUCT USED FOR UNKNOWN INDICATION
     Dosage: 0.01 UNK,QD
     Route: 047
     Dates: start: 20190408
  4. COLECALCIFEROL [Concomitant]
     Active Substance: CHOLECALCIFEROL
     Indication: PRODUCT USED FOR UNKNOWN INDICATION
     Dosage: 1 DF,2
     Route: 048
     Dates: start: 20200506
  5. TRAMADOL. [Concomitant]
     Active Substance: TRAMADOL
     Indication: PRODUCT USED FOR UNKNOWN INDICATION
     Dosage: 24 UNK,QD
     Route: 048
     Dates: start: 20190408
  6. CLOZAPINE. [Concomitant]
     Active Substance: CLOZAPINE
     Indication: PRODUCT USED FOR UNKNOWN INDICATION
     Dosage: 25MG
     Route: 048
     Dates: start: 2012
  7. AUGMENTIN [Concomitant]
     Active Substance: AMOXICILLIN\CLAVULANATE POTASSIUM
     Indication: PRODUCT USED FOR UNKNOWN INDICATION
     Dosage: 3000MG
     Route: 048
     Dates: start: 20201005, end: 20201016
  8. AUGMENTIN [Concomitant]
     Active Substance: AMOXICILLIN\CLAVULANATE POTASSIUM
     Dosage: 1500MG
     Route: 042
     Dates: start: 20200825, end: 20200905
  9. AUGMENTIN [Concomitant]
     Active Substance: AMOXICILLIN\CLAVULANATE POTASSIUM
     Dosage: 3000MG
     Route: 048
     Dates: start: 20200916, end: 20200925
  10. LACTULOSE. [Concomitant]
     Active Substance: LACTULOSE
     Indication: PRODUCT USED FOR UNKNOWN INDICATION
     Dosage: 4 DF,QD
     Route: 048
     Dates: start: 20190408
  11. XYLENE [Concomitant]
     Active Substance: XYLENE
     Indication: PRODUCT USED FOR UNKNOWN INDICATION
     Dosage: 10 UNK,QD
     Route: 001
     Dates: start: 20200701, end: 20200711
  12. TIMOLOL. [Concomitant]
     Active Substance: TIMOLOL
     Indication: PRODUCT USED FOR UNKNOWN INDICATION
     Dosage: 0.5 UNK,QD
     Route: 047
     Dates: start: 20190408
  13. TARDYFERON [Concomitant]
     Active Substance: FERROUS SULFATE
     Indication: PRODUCT USED FOR UNKNOWN INDICATION
     Dosage: 80MG
     Route: 048
  14. ACIDE FOLIQUE [Concomitant]
     Active Substance: FOLIC ACID
     Indication: PRODUCT USED FOR UNKNOWN INDICATION
     Dosage: 5MG
     Route: 048
  15. OXAZEPAM. [Concomitant]
     Active Substance: OXAZEPAM
     Indication: PRODUCT USED FOR UNKNOWN INDICATION
     Dosage: 10 MG,QD
     Route: 048
     Dates: start: 20190820
  16. SINEMET [Concomitant]
     Active Substance: CARBIDOPA\LEVODOPA
     Indication: PRODUCT USED FOR UNKNOWN INDICATION
     Dosage: 4 DF,QD
     Route: 048
     Dates: start: 20190408
  17. POTASSIUM [Concomitant]
     Active Substance: POTASSIUM
     Indication: PRODUCT USED FOR UNKNOWN INDICATION
     Dosage: 1 DF,QD
     Route: 054
     Dates: start: 20190408

REACTIONS (2)
  - Condition aggravated [Recovering/Resolving]
  - Lung disorder [Recovering/Resolving]

NARRATIVE: CASE EVENT DATE: 2017
